FAERS Safety Report 11563561 (Version 1)
Quarter: 2015Q3

REPORT INFORMATION
  Report Type: Spontaneous
  Country: US (occurrence: US)
  Receive Date: 20150928
  Receipt Date: 20150928
  Transmission Date: 20151125
  Serious: No
  Sender: FDA-Public Use
  Company Number: US-WATSON-2013-26913

PATIENT
  Sex: Female
  Weight: 51.25 kg

DRUGS (7)
  1. ZENPEP [Suspect]
     Active Substance: PANCRELIPASE\PANCRELIPASE AMYLASE\PANCRELIPASE LIPASE\PANCRELIPASE PROTEASE
     Indication: PANCREATITIS CHRONIC
     Dosage: 2 CAPSULES WITH THREE MEALS AND TWO SNACKS FOR A TOTAL OF 10 CAPSULES (200,000 U) DAILY
     Route: 048
     Dates: start: 20130306
  2. ZENPEP [Suspect]
     Active Substance: PANCRELIPASE\PANCRELIPASE AMYLASE\PANCRELIPASE LIPASE\PANCRELIPASE PROTEASE
     Dosage: 40000 U ( 2 CAPSULES) WITH FOOD (UP TO 10 CAPSULES / DAY)
     Route: 048
  3. VITAMIN D [Concomitant]
     Active Substance: CHOLECALCIFEROL
     Dosage: 50000 USP, Q WEEK
     Route: 048
  4. VITAMIN D [Concomitant]
     Active Substance: CHOLECALCIFEROL
     Indication: PARATHYROID DISORDER
     Dosage: 100000 UNK, UNK
     Route: 048
  5. CALCIUM CARBONATE AND VITAMIN D [Concomitant]
     Indication: PRODUCT USED FOR UNKNOWN INDICATION
     Dosage: 5000 MG + 400 UNITS
     Route: 065
  6. CALCIUM [Concomitant]
     Active Substance: CALCIUM
     Indication: PRODUCT USED FOR UNKNOWN INDICATION
     Dosage: UNK
     Route: 065
  7. SYNTHROID [Concomitant]
     Active Substance: LEVOTHYROXINE SODIUM
     Indication: THYROID DISORDER
     Dosage: 75 ?G, QD
     Route: 048

REACTIONS (11)
  - Dry mouth [Not Recovered/Not Resolved]
  - Saliva altered [Not Recovered/Not Resolved]
  - Oral disorder [Not Recovered/Not Resolved]
  - Increased viscosity of bronchial secretion [Not Recovered/Not Resolved]
  - Oral pain [Not Recovered/Not Resolved]
  - Weight increased [Unknown]
  - Cough [Not Recovered/Not Resolved]
  - Tooth deposit [Not Recovered/Not Resolved]
  - Decreased appetite [Unknown]
  - Dysgeusia [Not Recovered/Not Resolved]
  - Productive cough [Not Recovered/Not Resolved]

NARRATIVE: CASE EVENT DATE: 2013
